FAERS Safety Report 24683854 (Version 1)
Quarter: 2024Q4

REPORT INFORMATION
  Report Type: Spontaneous
  Country: ES (occurrence: ES)
  Receive Date: 20241202
  Receipt Date: 20241202
  Transmission Date: 20250115
  Serious: Yes (Other)
  Sender: TOLMAR
  Company Number: ES-TOLMAR, INC.-24ES054437

PATIENT
  Age: 60 Year
  Sex: Male

DRUGS (15)
  1. ELIGARD [Suspect]
     Active Substance: LEUPROLIDE ACETATE
     Indication: Prostate cancer
     Dosage: UNK UNK, Q 6 MONTH
     Route: 058
  2. ELIGARD [Suspect]
     Active Substance: LEUPROLIDE ACETATE
     Indication: Hormone-dependent prostate cancer
  3. ELIGARD [Suspect]
     Active Substance: LEUPROLIDE ACETATE
     Indication: Prostate cancer
     Dosage: UNK
  4. ELIGARD [Suspect]
     Active Substance: LEUPROLIDE ACETATE
     Indication: Hormone-dependent prostate cancer
  5. ENZALUTAMIDE [Suspect]
     Active Substance: ENZALUTAMIDE
     Indication: Hormone-refractory prostate cancer
     Dosage: 160 MILLIGRAM, QD (EVERY 24 HOURS)
  6. ENZALUTAMIDE [Suspect]
     Active Substance: ENZALUTAMIDE
     Dosage: 160 MILLIGRAM, QD (EVERY 24 HOURS)
     Dates: start: 202107
  7. COVID-19 VACCINE NOS [Suspect]
     Active Substance: COVID-19 VACCINE
     Indication: COVID-19 immunisation
     Dosage: UNK
  8. ABIRATERONE [Suspect]
     Active Substance: ABIRATERONE\ABIRATERONE ACETATE
     Indication: Hormone-refractory prostate cancer
     Dosage: 1000 MILLIGRAM, QD
     Dates: start: 202109
  9. BICALUTAMIDE [Concomitant]
     Active Substance: BICALUTAMIDE
     Indication: Prostate cancer
     Dosage: UNK (FOR 1 MONTH)
  10. BICALUTAMIDE [Concomitant]
     Active Substance: BICALUTAMIDE
     Indication: Hormone-dependent prostate cancer
  11. DOCETAXEL [Concomitant]
     Active Substance: DOCETAXEL
     Indication: Prostate cancer
     Dosage: 75 MILLIGRAM PER SQUARE METRE (FOR SIX CYCLES EVERY 3 WEEKS)
  12. DOCETAXEL [Concomitant]
     Active Substance: DOCETAXEL
     Indication: Hormone-dependent prostate cancer
  13. PREDNISONE [Concomitant]
     Active Substance: PREDNISONE
     Indication: Prostate cancer
     Dosage: 5 MILLIGRAM, Q 12 HR (BID) FOR SIX CYCLES EVERY 3 WEEKS
  14. PREDNISONE [Concomitant]
     Active Substance: PREDNISONE
     Indication: Hormone-dependent prostate cancer
     Dosage: 5 MILLIGRAM, Q 12 HR (BID) FOR SIX CYCLES EVERY 3 WEEKS
     Dates: start: 202109
  15. LORMETAZEPAM [Concomitant]
     Active Substance: LORMETAZEPAM
     Indication: Insomnia
     Dosage: 1 MILLIGRAM, QD (AT NIGHT) (PRO RE NATA BASIS)
     Dates: start: 201906

REACTIONS (3)
  - Neutropenia [Recovered/Resolved]
  - Hormone-refractory prostate cancer [Recovering/Resolving]
  - Prostatic specific antigen increased [Unknown]
